FAERS Safety Report 18899268 (Version 18)
Quarter: 2023Q1

REPORT INFORMATION
  Report Type: Report from Study
  Country: US (occurrence: US)
  Receive Date: 20210216
  Receipt Date: 20230328
  Transmission Date: 20230418
  Serious: Yes (Hospitalization, Other)
  Sender: FDA-Public Use
  Company Number: US-TAKEDA-2021TUS008630

PATIENT
  Age: 54 Year
  Sex: Male

DRUGS (2)
  1. HEMOFIL [Suspect]
     Active Substance: ANTIHEMOPHILIC FACTOR HUMAN
     Indication: Product used for unknown indication
     Dosage: 3500 INTERNATIONAL UNIT
     Route: 042
  2. HEMOFIL [Suspect]
     Active Substance: ANTIHEMOPHILIC FACTOR HUMAN
     Dosage: 3560 INTERNATIONAL UNIT
     Route: 042

REACTIONS (13)
  - Joint injury [Not Recovered/Not Resolved]
  - Haemarthrosis [Not Recovered/Not Resolved]
  - Wound haemorrhage [Unknown]
  - Haemorrhage [Recovered/Resolved]
  - Poor venous access [Unknown]
  - Dehydration [Unknown]
  - Treatment noncompliance [Unknown]
  - Limb discomfort [Unknown]
  - Shunt malfunction [Unknown]
  - Limb injury [Unknown]
  - Joint lock [Unknown]
  - Device infusion issue [Unknown]
  - Inappropriate schedule of product administration [Unknown]

NARRATIVE: CASE EVENT DATE: 20210131
